FAERS Safety Report 6199455-4 (Version None)
Quarter: 2009Q2

REPORT INFORMATION
  Report Type: 
  Country: None (occurrence: None)
  Receive Date: 20090522
  Receipt Date: 20090515
  Transmission Date: 20091009
  Serious: Yes (Death, Hospitalization)
  Sender: FDA-Public Use
  Company Number: US-PFIZER INC-2004047305

PATIENT
  Sex: Female
  Weight: 105 kg

DRUGS (15)
  1. SILDENAFIL CITRATE [Suspect]
     Indication: PULMONARY ARTERIAL HYPERTENSION
     Route: 048
     Dates: start: 20030901, end: 20040713
  2. NORVASC [Concomitant]
     Route: 048
     Dates: start: 20010801, end: 20040717
  3. POTASSIUM CHLORIDE [Concomitant]
     Route: 048
     Dates: start: 20010801, end: 20040717
  4. PREDNISONE [Concomitant]
     Route: 048
     Dates: start: 20020101
  5. PREVACID [Concomitant]
     Route: 048
     Dates: start: 20020101, end: 20040709
  6. LASIX [Concomitant]
     Route: 048
     Dates: start: 20010101, end: 20040714
  7. COMBIVENT [Concomitant]
     Route: 055
     Dates: start: 19960101, end: 20040706
  8. ALBUTEROL [Concomitant]
     Route: 055
     Dates: start: 19960101, end: 20040706
  9. FLOLAN [Concomitant]
     Route: 042
     Dates: start: 20010101, end: 20040718
  10. LOMOTIL [Concomitant]
     Route: 048
     Dates: start: 20030101
  11. LEVAQUIN [Concomitant]
     Route: 048
     Dates: start: 20040630, end: 20040706
  12. HEPARIN [Concomitant]
     Dates: start: 20040707, end: 20040710
  13. WARFARIN SODIUM [Concomitant]
     Dates: start: 20040707, end: 20040708
  14. INSULIN [Concomitant]
     Dates: start: 20040707, end: 20040716
  15. METFORMIN HCL [Concomitant]
     Dates: start: 20040710, end: 20040717

REACTIONS (11)
  - CARDIAC FAILURE [None]
  - CARDIAC FAILURE HIGH OUTPUT [None]
  - CIRCULATORY COLLAPSE [None]
  - CONDITION AGGRAVATED [None]
  - DYSPNOEA [None]
  - EXSANGUINATION [None]
  - HEPARIN-INDUCED THROMBOCYTOPENIA [None]
  - HYPOXIA [None]
  - PULMONARY HAEMORRHAGE [None]
  - THROMBOCYTOPENIA [None]
  - UPPER RESPIRATORY TRACT INFECTION [None]
